FAERS Safety Report 9909393 (Version 1)
Quarter: 2014Q1

REPORT INFORMATION
  Report Type: Spontaneous
  Country: US (occurrence: None)
  Receive Date: 20140214
  Receipt Date: 20140214
  Transmission Date: 20141002
  Serious: No
  Sender: FDA-Public Use
  Company Number: None

PATIENT
  Age: 56 Year
  Sex: Male

DRUGS (7)
  1. LEVOFLOXACIN [Suspect]
     Route: 048
  2. PAXIL [Concomitant]
  3. BENZTROPINE [Concomitant]
  4. HALDOL [Concomitant]
  5. TRAZODONE [Concomitant]
  6. FERROUS SULFATE [Concomitant]
  7. OMEPRAZOLE [Concomitant]

REACTIONS (3)
  - Delirium [None]
  - Confusional state [None]
  - Hallucination [None]
